FAERS Safety Report 15884266 (Version 1)
Quarter: 2019Q1

REPORT INFORMATION
  Report Type: Spontaneous
  Country: US (occurrence: US)
  Receive Date: 20190106
  Receipt Date: 20190106
  Transmission Date: 20190417
  Serious: No
  Sender: FDA-Public Use
  Company Number: None

PATIENT
  Age: 71 Year
  Sex: Male

DRUGS (1)
  1. DARATUMUMAB [Suspect]
     Active Substance: DARATUMUMAB
     Indication: PLASMA CELL MYELOMA
     Route: 042
     Dates: start: 20190102

REACTIONS (5)
  - Dyspnoea [None]
  - Wheezing [None]
  - Pharyngeal hypoaesthesia [None]
  - Angioedema [None]
  - Ocular hyperaemia [None]

NARRATIVE: CASE EVENT DATE: 20190103
